FAERS Safety Report 9855705 (Version 1)
Quarter: 2014Q1

REPORT INFORMATION
  Report Type: Spontaneous
  Country: US (occurrence: None)
  Receive Date: 20140129
  Receipt Date: 20140129
  Transmission Date: 20141002
  Serious: Yes (Life-Threatening, Hospitalization, Disabling)
  Sender: FDA-Public Use
  Company Number: None

PATIENT
  Age: 38 Year
  Sex: Male
  Weight: 72.58 kg

DRUGS (2)
  1. REGLAN [Suspect]
     Indication: NAUSEA
     Dosage: 20 MG 1 TIME INTO A VEIN
     Dates: start: 20140119, end: 20140119
  2. REGLAN [Suspect]
     Indication: VOMITING
     Dosage: 20 MG 1 TIME INTO A VEIN
     Dates: start: 20140119, end: 20140119

REACTIONS (6)
  - Fear [None]
  - Anxiety [None]
  - Tremor [None]
  - Muscle twitching [None]
  - Dyskinesia [None]
  - Muscle tightness [None]
